FAERS Safety Report 9397839 (Version 1)
Quarter: 2013Q3

REPORT INFORMATION
  Report Type: Spontaneous
  Country: JP (occurrence: JP)
  Receive Date: 20130712
  Receipt Date: 20130712
  Transmission Date: 20140515
  Serious: Yes (Hospitalization)
  Sender: FDA-Public Use
  Company Number: JP-BAYER-2013-083364

PATIENT
  Age: 78 Year
  Sex: Male
  Weight: 54.42 kg

DRUGS (7)
  1. NEXAVAR [Suspect]
     Indication: RENAL CELL CARCINOMA
     Dosage: 200 MG, BID
     Route: 048
     Dates: start: 20130227, end: 20130702
  2. ZYLORIC [Suspect]
     Dosage: UNK
     Route: 048
     Dates: end: 20130708
  3. LASIX [Concomitant]
  4. REZALTAS [Concomitant]
     Route: 048
  5. WARFARIN [Concomitant]
     Route: 048
  6. ADALAT [Concomitant]
     Route: 048
  7. NORVASC [Concomitant]
     Route: 048

REACTIONS (1)
  - Drug eruption [Recovered/Resolved]
